FAERS Safety Report 9015749 (Version 1)
Quarter: 2013Q1

REPORT INFORMATION
  Report Type: Spontaneous
  Country: CA (occurrence: None)
  Receive Date: 20130102
  Receipt Date: 20130102
  Transmission Date: 20140127
  Serious: Yes (Hospitalization)
  Sender: FDA-Public Use
  Company Number: ACO_32954_2012

PATIENT
  Age: 64 Year
  Sex: Female

DRUGS (3)
  1. FAMPYRA (DALFAMPRIDINE) TABLET, 10 MG [Suspect]
     Indication: GAIT DISTURBANCE
     Route: 048
     Dates: start: 20120915, end: 20121014
  2. HYDROCHLOROTHIAZIDE (HYDROCHLOROTHIAZIDE) [Concomitant]
  3. ANTINEOPLASTIC AGENTS [Concomitant]

REACTIONS (3)
  - Alcohol withdrawal syndrome [None]
  - Urinary tract infection [None]
  - Delirium [None]
